FAERS Safety Report 17081061 (Version 1)
Quarter: 2019Q4

REPORT INFORMATION
  Report Type: Spontaneous
  Country: US (occurrence: US)
  Receive Date: 20191127
  Receipt Date: 20191127
  Transmission Date: 20200122
  Serious: Yes (Death, Hospitalization, Other)
  Sender: FDA-Public Use
  Company Number: US-PFIZER INC-2019507414

PATIENT
  Age: 79 Year
  Sex: Female
  Weight: 53.52 kg

DRUGS (1)
  1. XELJANZ XR [Suspect]
     Active Substance: TOFACITINIB CITRATE
     Indication: RHEUMATOID ARTHRITIS
     Dosage: 11 MG, 1X/DAY
     Route: 048
     Dates: end: 20190906

REACTIONS (18)
  - Fatigue [Unknown]
  - Fall [Unknown]
  - Lymphopenia [Unknown]
  - Pain [Not Recovered/Not Resolved]
  - Neutropenia [Unknown]
  - Anaemia [Fatal]
  - Hypersomnia [Unknown]
  - Failure to thrive [Fatal]
  - Malaise [Unknown]
  - Internal haemorrhage [Fatal]
  - Asthenia [Unknown]
  - Mobility decreased [Unknown]
  - Pyrexia [Unknown]
  - Abnormal behaviour [Unknown]
  - Weight decreased [Unknown]
  - Eating disorder [Unknown]
  - Urinary tract infection [Unknown]
  - Joint instability [Unknown]

NARRATIVE: CASE EVENT DATE: 20190906
